FAERS Safety Report 21889481 (Version 1)
Quarter: 2023Q1

REPORT INFORMATION
  Report Type: Report from Study
  Country: AU (occurrence: AU)
  Receive Date: 20230120
  Receipt Date: 20230120
  Transmission Date: 20230418
  Serious: Yes (Other)
  Sender: FDA-Public Use
  Company Number: AU-TAKEDA-2022TUS090825

PATIENT
  Age: 13 Year
  Sex: Female

DRUGS (4)
  1. TEDUGLUTIDE [Suspect]
     Active Substance: TEDUGLUTIDE
     Indication: Short-bowel syndrome
     Dosage: 0.20 MILLILITER, QD
     Route: 058
     Dates: start: 20221010
  2. TEDUGLUTIDE [Suspect]
     Active Substance: TEDUGLUTIDE
     Indication: Short-bowel syndrome
     Dosage: 0.20 MILLILITER, QD
     Route: 058
     Dates: start: 20221010
  3. TEDUGLUTIDE [Suspect]
     Active Substance: TEDUGLUTIDE
     Indication: Short-bowel syndrome
     Dosage: 0.20 MILLILITER, QD
     Route: 058
     Dates: start: 20221010
  4. TEDUGLUTIDE [Suspect]
     Active Substance: TEDUGLUTIDE
     Indication: Short-bowel syndrome
     Dosage: 0.20 MILLILITER, QD
     Route: 058
     Dates: start: 20221010

REACTIONS (2)
  - Pharyngitis streptococcal [Recovering/Resolving]
  - Catheter site mass [Unknown]

NARRATIVE: CASE EVENT DATE: 20230113
